FAERS Safety Report 10878943 (Version 1)
Quarter: 2015Q1

REPORT INFORMATION
  Report Type: Spontaneous
  Country: GB (occurrence: GB)
  Receive Date: 20150302
  Receipt Date: 20150302
  Transmission Date: 20150721
  Serious: Yes (Other)
  Sender: FDA-Public Use
  Company Number: PHHY2015GB023555

PATIENT
  Age: 60 Year
  Sex: Male

DRUGS (1)
  1. SERTRALINE [Suspect]
     Active Substance: SERTRALINE HYDROCHLORIDE
     Indication: PRODUCT USED FOR UNKNOWN INDICATION
     Dosage: 25-100 MG
     Route: 065

REACTIONS (6)
  - Depression [Unknown]
  - Anxiety [Unknown]
  - Abnormal behaviour [Unknown]
  - Paranoia [Unknown]
  - Emotional poverty [Unknown]
  - Alcohol abuse [Unknown]
